FAERS Safety Report 9556012 (Version 1)
Quarter: 2013Q3

REPORT INFORMATION
  Report Type: Spontaneous
  Country: US (occurrence: US)
  Receive Date: 20130926
  Receipt Date: 20130926
  Transmission Date: 20140515
  Serious: No
  Sender: FDA-Public Use
  Company Number: US-ROXANE LABORATORIES, INC.-2013-RO-01580RO

PATIENT
  Sex: 0

DRUGS (2)
  1. METHOTREXATE [Suspect]
  2. ENBREL [Concomitant]

REACTIONS (3)
  - Headache [Unknown]
  - Eye pain [Unknown]
  - Nausea [Unknown]
